FAERS Safety Report 8278981-8 (Version None)
Quarter: 2012Q2

REPORT INFORMATION
  Report Type: 
  Country: None (occurrence: None)
  Receive Date: 20120412
  Receipt Date: 20111115
  Transmission Date: 20120825
  Serious: No
  Sender: FDA-Public Use
  Company Number: US-ASTRAZENECA-2011SE48600

PATIENT
  Age: 65 Year
  Sex: Female
  Weight: 172.7 kg

DRUGS (7)
  1. LASIX [Concomitant]
  2. MULTI-VITAMIN [Concomitant]
  3. NEXIUM [Suspect]
     Route: 048
  4. CALCIUM CARBONATE [Concomitant]
  5. MESTINON [Concomitant]
  6. NEXIUM [Suspect]
     Route: 048
     Dates: start: 20110812
  7. VICODIN [Concomitant]

REACTIONS (17)
  - FATIGUE [None]
  - ARTHRALGIA [None]
  - MALAISE [None]
  - GASTROOESOPHAGEAL REFLUX DISEASE [None]
  - OBESITY [None]
  - DYSPNOEA [None]
  - ABDOMINAL PAIN UPPER [None]
  - ABDOMINAL DISCOMFORT [None]
  - HERNIA [None]
  - GASTRIC MUCOSAL HYPERTROPHY [None]
  - ABDOMINAL PAIN [None]
  - TEMPERATURE INTOLERANCE [None]
  - MYALGIA [None]
  - COUGH [None]
  - DYSPEPSIA [None]
  - NAUSEA [None]
  - WEIGHT INCREASED [None]
